FAERS Safety Report 10064955 (Version 1)
Quarter: 2014Q2

REPORT INFORMATION
  Report Type: Spontaneous
  Country: US (occurrence: None)
  Receive Date: 20140407
  Receipt Date: 20140407
  Transmission Date: 20141212
  Serious: Yes (Hospitalization)
  Sender: FDA-Public Use
  Company Number: None

PATIENT
  Age: 99 Year
  Sex: Male
  Weight: 80 kg

DRUGS (1)
  1. ENALAPRIL [Suspect]
     Indication: HYPERTENSION
     Route: 048
     Dates: start: 20131113, end: 20131202

REACTIONS (2)
  - Rash [None]
  - Pemphigoid [None]
